FAERS Safety Report 7420058-5 (Version None)
Quarter: 2011Q2

REPORT INFORMATION
  Report Type: 
  Country: None (occurrence: None)
  Receive Date: 20110418
  Receipt Date: 20110407
  Transmission Date: 20111010
  Serious: No
  Sender: FDA-Public Use
  Company Number: US-BIOGENIDEC-2011BI013363

PATIENT
  Age: 45 Year
  Sex: Female

DRUGS (3)
  1. STATIN [Concomitant]
  2. TYSABRI [Suspect]
     Indication: MULTIPLE SCLEROSIS
     Route: 042
     Dates: start: 20100722, end: 20110211
  3. ARICEPT [Concomitant]

REACTIONS (3)
  - GENITAL RASH [None]
  - BLINDNESS UNILATERAL [None]
  - RASH PRURITIC [None]
